FAERS Safety Report 6659575-4 (Version None)
Quarter: 2010Q1

REPORT INFORMATION
  Report Type: 
  Country: None (occurrence: None)
  Receive Date: 20100330
  Receipt Date: 20100107
  Transmission Date: 20100710
  Serious: Yes (Hospitalization)
  Sender: FDA-Public Use
  Company Number: PHHY2010TW17464

PATIENT

DRUGS (1)
  1. EXJADE [Suspect]
     Dosage: 10 TABLETS

REACTIONS (4)
  - BONE MARROW TRANSPLANT [None]
  - DIARRHOEA [None]
  - PYREXIA [None]
  - WHITE BLOOD CELL COUNT DECREASED [None]
